FAERS Safety Report 6612185-7 (Version None)
Quarter: 2010Q1

REPORT INFORMATION
  Report Type: 
  Country: None (occurrence: None)
  Receive Date: 20100302
  Receipt Date: 20100302
  Transmission Date: 20100710
  Serious: No
  Sender: FDA-Public Use
  Company Number: None

PATIENT
  Age: 27 Year
  Sex: Female
  Weight: 107.0489 kg

DRUGS (1)
  1. MIRENA [Suspect]
     Indication: CONTRACEPTION
     Dates: start: 20080915, end: 20100301

REACTIONS (16)
  - ABDOMINAL PAIN UPPER [None]
  - ACNE [None]
  - ALOPECIA [None]
  - ANGER [None]
  - ANXIETY [None]
  - BACK PAIN [None]
  - DEPRESSION [None]
  - DIZZINESS [None]
  - FATIGUE [None]
  - HEADACHE [None]
  - HUNGER [None]
  - HYPOAESTHESIA [None]
  - LOSS OF LIBIDO [None]
  - MEMORY IMPAIRMENT [None]
  - MUSCLE SPASMS [None]
  - PAIN IN EXTREMITY [None]
